FAERS Safety Report 7368266-6 (Version None)
Quarter: 2011Q1

REPORT INFORMATION
  Report Type: 
  Country: None (occurrence: None)
  Receive Date: 20110323
  Receipt Date: 20091122
  Transmission Date: 20110831
  Serious: Yes (Death, Hospitalization, Other)
  Sender: FDA-Public Use
  Company Number: US-BAYER-200940595NA

PATIENT
  Sex: Female
  Weight: 74.83 kg

DRUGS (14)
  1. TRASYLOL [Suspect]
     Indication: AORTIC VALVE REPLACEMENT
  2. PERIDEX [Concomitant]
     Dosage: 15 ML, BID
     Route: 048
     Dates: start: 20070104, end: 20070123
  3. AMBIEN [Concomitant]
     Dosage: 10 MG, HS
     Route: 048
     Dates: start: 20070103, end: 20070123
  4. ATENOLOL [Concomitant]
     Dosage: 10 MG, QD
     Dates: end: 20070123
  5. MANNITOL [Concomitant]
     Dosage: 50 ML, UNK
     Route: 042
     Dates: start: 20070124, end: 20070124
  6. EPINEPHRINE [Concomitant]
     Dosage: 4 MG, UNK
     Route: 042
     Dates: start: 20070124, end: 20070124
  7. BACTROBAN [Concomitant]
     Dosage: 1 G, QD
     Route: 045
     Dates: start: 20070104, end: 20070123
  8. TRASYLOL [Suspect]
     Indication: CORONARY ARTERY BYPASS
     Dosage: 1ML, 200ML, 50ML/HR
     Route: 042
     Dates: start: 20070124, end: 20070124
  9. CRESTOR [Concomitant]
     Dosage: 5 MG, HS
     Dates: start: 20070104, end: 20070123
  10. SOLU-MEDROL [Concomitant]
     Dosage: 1000 MG, UNK
     Route: 042
     Dates: start: 20070124, end: 20070124
  11. EPHEDRINE SULFATE [Concomitant]
     Dosage: 50 MG, UNK
     Route: 042
     Dates: start: 20070124, end: 20070124
  12. VANCOMYCIN [Concomitant]
     Dosage: 500 MG, UNK
     Route: 042
     Dates: start: 20070124, end: 20070130
  13. CEPHALEXIN [Concomitant]
     Dosage: 500 MG, BID
  14. NEO-SYNEPHRINOL [Concomitant]
     Dosage: 20 MG, UNK
     Route: 042
     Dates: start: 20070124

REACTIONS (13)
  - STRESS [None]
  - FEAR [None]
  - ANHEDONIA [None]
  - RENAL IMPAIRMENT [None]
  - MULTI-ORGAN FAILURE [None]
  - DEATH [None]
  - ANXIETY [None]
  - RENAL FAILURE [None]
  - RENAL INJURY [None]
  - EMOTIONAL DISTRESS [None]
  - UNEVALUABLE EVENT [None]
  - INJURY [None]
  - PAIN [None]
